FAERS Safety Report 21653277 (Version 1)
Quarter: 2022Q4

REPORT INFORMATION
  Report Type: Report from Study
  Country: US (occurrence: US)
  Receive Date: 20221128
  Receipt Date: 20221128
  Transmission Date: 20230112
  Serious: Yes (Other)
  Sender: FDA-Public Use
  Company Number: US-BRISTOL-MYERS SQUIBB COMPANY-2022-143815

PATIENT
  Age: 52 Year
  Sex: Female
  Weight: 58.97 kg

DRUGS (4)
  1. REVLIMID [Suspect]
     Active Substance: LENALIDOMIDE
     Indication: Plasma cell myeloma
     Dosage: TAKE 1 CAPSULE DAILY
     Route: 048
     Dates: start: 20221019
  2. VITAMIN D2 [Concomitant]
     Active Substance: ERGOCALCIFEROL
     Indication: Product used for unknown indication
     Dosage: 10MCG
     Route: 065
  3. IRON + VITAMIN C [Concomitant]
     Indication: Product used for unknown indication
     Dosage: 100-250 MG
     Route: 065
  4. OXYCODONE HYDROCHLORIDE [Concomitant]
     Active Substance: OXYCODONE HYDROCHLORIDE
     Indication: Product used for unknown indication
     Route: 065

REACTIONS (4)
  - White blood cell count decreased [Unknown]
  - Fracture [Unknown]
  - Pain [Unknown]
  - Nausea [Unknown]
